FAERS Safety Report 4703162-1 (Version None)
Quarter: 2005Q2

REPORT INFORMATION
  Report Type: 
  Country: None (occurrence: None)
  Receive Date: 20050624
  Receipt Date: 20050517
  Transmission Date: 20051028
  Serious: No
  Sender: FDA-Public Use
  Company Number: 2005BI010054

PATIENT
  Sex: Female

DRUGS (3)
  1. AVONEX [Suspect]
     Indication: MULTIPLE SCLEROSIS
     Dosage: IM
     Route: 030
  2. NATALIZUMAB [Suspect]
     Indication: MULTIPLE SCLEROSIS
     Dosage: IV
     Route: 042
  3. COPAXONE [Concomitant]

REACTIONS (5)
  - COGNITIVE DETERIORATION [None]
  - FATIGUE [None]
  - NECROSIS [None]
  - VAGINAL DISORDER [None]
  - VISUAL DISTURBANCE [None]
